FAERS Safety Report 12762041 (Version 1)
Quarter: 2016Q3

REPORT INFORMATION
  Report Type: Spontaneous
  Country: JP (occurrence: JP)
  Receive Date: 20160920
  Receipt Date: 20160920
  Transmission Date: 20161109
  Serious: Yes (Hospitalization)
  Sender: FDA-Public Use
  Company Number: JP-OTSUKA-02100-JPN-02-0028

PATIENT
  Age: 95 Year
  Sex: Female
  Weight: 45 kg

DRUGS (7)
  1. GASTER [Suspect]
     Active Substance: FAMOTIDINE
     Dosage: 20 MG, BID
     Route: 048
     Dates: start: 20011124, end: 20011129
  2. PLETAAL TABLETS 50MG [Suspect]
     Active Substance: CILOSTAZOL
     Dosage: 100 MG, BID
     Route: 048
     Dates: start: 20011124, end: 20011129
  3. ANPLAG [Suspect]
     Active Substance: SARPOGRELATE
     Dosage: 100 MG, TID
     Route: 048
     Dates: start: 20011124, end: 20011129
  4. FRANDOL S [Concomitant]
     Active Substance: ISOSORBIDE DINITRATE
     Indication: PRODUCT USED FOR UNKNOWN INDICATION
     Dosage: 40 MG, QID
     Route: 062
     Dates: start: 20010505
  5. GASTER [Suspect]
     Active Substance: FAMOTIDINE
     Indication: PRODUCT USED FOR UNKNOWN INDICATION
     Dosage: 20 MG, BID
     Route: 048
     Dates: start: 20010518, end: 20011115
  6. ANPLAG [Suspect]
     Active Substance: SARPOGRELATE
     Indication: PRODUCT USED FOR UNKNOWN INDICATION
     Dosage: 100 MG, TID
     Route: 048
     Dates: start: 20010518, end: 20011115
  7. PLETAAL TABLETS 50MG [Suspect]
     Active Substance: CILOSTAZOL
     Indication: PERIPHERAL ARTERIAL OCCLUSIVE DISEASE
     Dosage: 100 MG, BID
     Route: 048
     Dates: start: 20010518, end: 20011115

REACTIONS (2)
  - Hepatic function abnormal [Recovered/Resolved]
  - Hepatic cyst [Unknown]

NARRATIVE: CASE EVENT DATE: 20011114
